FAERS Safety Report 11853877 (Version 1)
Quarter: 2015Q4

REPORT INFORMATION
  Report Type: Spontaneous
  Country: US (occurrence: US)
  Receive Date: 20151219
  Receipt Date: 20151219
  Transmission Date: 20160305
  Serious: No
  Sender: FDA-Public Use
  Company Number: US-ZYDUS-006571

PATIENT
  Age: 42 Year
  Sex: Female

DRUGS (3)
  1. PEGINTERFERON ALFA-2A [Concomitant]
     Active Substance: PEGINTERFERON ALFA-2A
  2. RIBAVIRIN. [Suspect]
     Active Substance: RIBAVIRIN
     Indication: HEPATITIS C
     Dosage: 600MG QAM, 400MG QPM,PO
     Route: 048
  3. SOVALDI [Concomitant]
     Active Substance: SOFOSBUVIR

REACTIONS (2)
  - Alopecia [Unknown]
  - Fatigue [Unknown]
